FAERS Safety Report 7947918-0 (Version None)
Quarter: 2011Q4

REPORT INFORMATION
  Report Type: 
  Country: None (occurrence: None)
  Receive Date: 20111121
  Receipt Date: 20111111
  Transmission Date: 20120403
  Serious: Yes (Hospitalization, Other)
  Sender: FDA-Public Use
  Company Number: 2010SP058760

PATIENT
  Age: 34 Year
  Sex: Female
  Weight: 106.1417 kg

DRUGS (2)
  1. LEVOTHYROXINE SODIUM [Concomitant]
  2. NUVARING [Suspect]
     Indication: CONTRACEPTION
     Dates: start: 20060201, end: 20081101

REACTIONS (11)
  - HORMONE LEVEL ABNORMAL [None]
  - PULMONARY EMBOLISM [None]
  - MULTIPLE INJURIES [None]
  - ABDOMINAL PAIN [None]
  - CONDITION AGGRAVATED [None]
  - HYPERCOAGULATION [None]
  - PLANTAR FASCIITIS [None]
  - BLOOD THYROID STIMULATING HORMONE INCREASED [None]
  - DEEP VEIN THROMBOSIS [None]
  - DYSMENORRHOEA [None]
  - SINUS TACHYCARDIA [None]
